FAERS Safety Report 5258784-9 (Version None)
Quarter: 2007Q1

REPORT INFORMATION
  Report Type: 
  Country: None (occurrence: None)
  Receive Date: 20070308
  Receipt Date: 20070227
  Transmission Date: 20070707
  Serious: Yes (Other)
  Sender: FDA-Public Use
  Company Number: JP-ELI_LILLY_AND_COMPANY-JP200703000335

PATIENT
  Sex: Female
  Weight: 54 kg

DRUGS (1)
  1. RALOXIFENE HCL [Suspect]
     Dosage: 60 MG, DAILY (1/D)
     Route: 048
     Dates: start: 20050411, end: 20060718

REACTIONS (1)
  - ANGINA PECTORIS [None]
